FAERS Safety Report 8371889-9 (Version None)
Quarter: 2012Q2

REPORT INFORMATION
  Report Type: 
  Country: None (occurrence: None)
  Receive Date: 20120518
  Receipt Date: 20120503
  Transmission Date: 20120825
  Serious: Yes (Hospitalization)
  Sender: FDA-Public Use
  Company Number: US-ROCHE-1065395

PATIENT
  Sex: Female

DRUGS (1)
  1. RITUXAN [Suspect]
     Indication: RHEUMATOID ARTHRITIS

REACTIONS (7)
  - SLOW SPEECH [None]
  - UNEVALUABLE EVENT [None]
  - ILL-DEFINED DISORDER [None]
  - TACHYPHRENIA [None]
  - DEPRESSION [None]
  - INCREASED APPETITE [None]
  - MANIA [None]
